FAERS Safety Report 4755769-3 (Version None)
Quarter: 2005Q3

REPORT INFORMATION
  Report Type: 
  Country: None (occurrence: None)
  Receive Date: 20050830
  Receipt Date: 20050722
  Transmission Date: 20060218
  Serious: No
  Sender: FDA-Public Use
  Company Number: US-BRISTOL-MYERS SQUIBB COMPANY-13047980

PATIENT
  Age: 34 Year
  Sex: Male

DRUGS (4)
  1. ABILIFY [Suspect]
     Indication: BIPOLAR DISORDER
     Route: 048
  2. INSULIN [Concomitant]
  3. LITHIUM [Concomitant]
  4. KLONOPIN [Concomitant]

REACTIONS (1)
  - HICCUPS [None]
